FAERS Safety Report 25746975 (Version 1)
Quarter: 2025Q3

REPORT INFORMATION
  Report Type: Spontaneous
  Country: CN (occurrence: CN)
  Receive Date: 20250901
  Receipt Date: 20250901
  Transmission Date: 20251021
  Serious: Yes (Hospitalization, Other)
  Sender: NOVARTIS
  Company Number: CN-002147023-NVSC2025CN132699

PATIENT
  Age: 57 Year
  Sex: Male
  Weight: 75 kg

DRUGS (2)
  1. ENTRESTO [Suspect]
     Active Substance: SACUBITRIL\VALSARTAN
     Indication: Hypertension
     Dosage: 100 MG, QD (1 PILL, QD)
     Route: 048
     Dates: start: 20240801, end: 20250818
  2. DUPILUMAB [Suspect]
     Active Substance: DUPILUMAB
     Indication: Asthma
     Route: 058
     Dates: start: 20241211, end: 20250723

REACTIONS (14)
  - Sudden hearing loss [Recovering/Resolving]
  - Sleep disorder [Unknown]
  - Blood triglycerides increased [Unknown]
  - Blood cholesterol increased [Unknown]
  - Low density lipoprotein increased [Unknown]
  - Apolipoprotein B increased [Unknown]
  - Anion gap decreased [Unknown]
  - Glomerular filtration rate decreased [Unknown]
  - Sinus bradycardia [Unknown]
  - Electrocardiogram P wave abnormal [Unknown]
  - Paranasal sinus inflammation [Unknown]
  - Lung opacity [Unknown]
  - Blood fibrinogen decreased [Unknown]
  - Deafness neurosensory [Unknown]

NARRATIVE: CASE EVENT DATE: 20250806
